FAERS Safety Report 9583717 (Version 1)
Quarter: 2013Q4

REPORT INFORMATION
  Report Type: Spontaneous
  Country: US (occurrence: US)
  Receive Date: 20131002
  Receipt Date: 20131002
  Transmission Date: 20140711
  Serious: No
  Sender: FDA-Public Use
  Company Number: US-AMGEN-USASP2013048659

PATIENT
  Age: 41 Year
  Sex: Female
  Weight: 86.17 kg

DRUGS (5)
  1. ENBREL [Suspect]
     Indication: PRODUCT USED FOR UNKNOWN INDICATION
     Dosage: 50 MG, QWK
     Route: 058
  2. ALLEGRA [Concomitant]
     Dosage: 180 MG, UNK
  3. PRILOSEC                           /00661201/ [Concomitant]
     Dosage: 20 MG, UNK
  4. VITAMIN D                          /00107901/ [Concomitant]
     Dosage: 2000 UNIT, UNK
  5. FOLIC ACID [Concomitant]
     Dosage: UNK

REACTIONS (3)
  - Injection site reaction [Unknown]
  - Injection site erythema [Unknown]
  - Injection site pruritus [Unknown]
